FAERS Safety Report 16778421 (Version 2)
Quarter: 2019Q3

REPORT INFORMATION
  Report Type: Spontaneous
  Country: CN (occurrence: CN)
  Receive Date: 20190906
  Receipt Date: 20190906
  Transmission Date: 20191005
  Serious: Yes (Other)
  Sender: FDA-Public Use
  Company Number: PHHY2019CN203254

PATIENT
  Age: 73 Year
  Sex: Female

DRUGS (15)
  1. SPIRONOLACTONE. [Suspect]
     Active Substance: SPIRONOLACTONE
     Indication: PRODUCT USED FOR UNKNOWN INDICATION
     Dosage: 20 MG, QD
     Route: 065
  2. ENTRESTO [Suspect]
     Active Substance: SACUBITRIL\VALSARTAN
     Dosage: 50 MG, BID
     Route: 065
     Dates: start: 20181231
  3. METOPROLOL SUCCINATE. [Suspect]
     Active Substance: METOPROLOL SUCCINATE
     Indication: HYPERTENSION
     Dosage: 47.5 MG, QD
     Route: 065
     Dates: start: 20181225
  4. METOPROLOL SUCCINATE. [Suspect]
     Active Substance: METOPROLOL SUCCINATE
     Dosage: 47.5 MG, QD
     Route: 065
     Dates: start: 20181231
  5. ACARBOSE. [Suspect]
     Active Substance: ACARBOSE
     Indication: PRODUCT USED FOR UNKNOWN INDICATION
     Dosage: 50 MG, TID
     Route: 065
  6. FUROSEMIDE. [Suspect]
     Active Substance: FUROSEMIDE
     Indication: PRODUCT USED FOR UNKNOWN INDICATION
     Dosage: 20 MG, QD
     Route: 065
  7. ENTRESTO [Suspect]
     Active Substance: SACUBITRIL\VALSARTAN
     Indication: CARDIAC FAILURE
     Dosage: 25 MG, BID
     Route: 065
     Dates: start: 20181225
  8. METOPROLOL SUCCINATE. [Suspect]
     Active Substance: METOPROLOL SUCCINATE
     Indication: CARDIAC FAILURE
     Dosage: 23.75 MG, QD
     Route: 065
     Dates: start: 20180824
  9. METOPROLOL SUCCINATE. [Suspect]
     Active Substance: METOPROLOL SUCCINATE
     Dosage: 71.25 MG, QD
     Route: 065
     Dates: start: 20190506
  10. ASPIRIN. [Suspect]
     Active Substance: ASPIRIN
     Indication: PRODUCT USED FOR UNKNOWN INDICATION
     Dosage: 0.1 G, QD
     Route: 065
  11. ENTRESTO [Suspect]
     Active Substance: SACUBITRIL\VALSARTAN
     Dosage: 50 MG, BID
     Route: 065
     Dates: start: 20190506
  12. CLOPIDOGREL [Suspect]
     Active Substance: CLOPIDOGREL BISULFATE
     Indication: PRODUCT USED FOR UNKNOWN INDICATION
     Dosage: 75 MG, QD
     Route: 065
  13. ATORVASTATIN CALCIUM. [Suspect]
     Active Substance: ATORVASTATIN CALCIUM
     Indication: PRODUCT USED FOR UNKNOWN INDICATION
     Dosage: 20 MG, QN
     Route: 065
  14. METFORMIN HYDROCHLORIDE. [Suspect]
     Active Substance: METFORMIN HYDROCHLORIDE
     Indication: DIABETES MELLITUS
     Dosage: 0.5 G, BID
     Route: 065
  15. NITROGLYCERIN. [Suspect]
     Active Substance: NITROGLYCERIN
     Indication: PRODUCT USED FOR UNKNOWN INDICATION
     Dosage: 20 UG/MIN.KG
     Route: 065

REACTIONS (25)
  - Acute coronary syndrome [Unknown]
  - Rhonchi [Unknown]
  - Vomiting [Unknown]
  - Wrong technique in product usage process [Unknown]
  - Cardiomegaly [Unknown]
  - Arteriosclerosis coronary artery [Unknown]
  - Nausea [Unknown]
  - Aortic valve incompetence [Unknown]
  - Dyspnoea [Unknown]
  - Atrioventricular block first degree [Unknown]
  - Cardiovascular disorder [Unknown]
  - Cardiac dysfunction [Unknown]
  - Left ventricular hypertrophy [Unknown]
  - Dyspraxia [Unknown]
  - Underdose [Unknown]
  - Tricuspid valve incompetence [Unknown]
  - Electrocardiogram T wave inversion [Unknown]
  - Chest discomfort [Unknown]
  - Aortic valve thickening [Unknown]
  - Acute myocardial infarction [Unknown]
  - Pulmonary arterial hypertension [Unknown]
  - Oedema peripheral [Unknown]
  - Mitral valve incompetence [Unknown]
  - Aortic stenosis [Unknown]
  - Respiration abnormal [Unknown]
